FAERS Safety Report 5401123-0 (Version None)
Quarter: 2007Q3

REPORT INFORMATION
  Report Type: 
  Country: None (occurrence: None)
  Receive Date: 20070731
  Receipt Date: 20070720
  Transmission Date: 20080115
  Serious: Yes (Life-Threatening, Hospitalization)
  Sender: FDA-Public Use
  Company Number: GB-NOVOPROD-265775

PATIENT
  Age: 47 Year
  Sex: Male
  Weight: 65 kg

DRUGS (8)
  1. NOVONORM [Suspect]
     Indication: DIABETES MELLITUS
     Dosage: 500 UG, QD
     Route: 048
  2. ASPIRINE                           /00002701/ [Concomitant]
     Dosage: 75 MG, QD
     Route: 048
  3. ATORVASTATIN CALCIUM [Concomitant]
     Dosage: 20 MG, QD
     Route: 048
  4. BISOPROLOL FUMARATE [Concomitant]
     Dosage: 5 MG, QD
     Route: 048
  5. FUROSEMIDE [Concomitant]
     Dosage: 80 MG, QD
     Route: 048
  6. RAMIPRIL [Concomitant]
     Dosage: 5 MG, QD
     Route: 048
  7. SILDENAFIL CITRATE [Concomitant]
     Dosage: 100 MG, QD
     Route: 048
  8. SPIRONOLACTONE [Concomitant]
     Dosage: 12.5 MG, QD
     Route: 048

REACTIONS (3)
  - CARDIAC FAILURE [None]
  - FLUID OVERLOAD [None]
  - WEIGHT INCREASED [None]
